FAERS Safety Report 7409930-X (Version None)
Quarter: 2011Q2

REPORT INFORMATION
  Report Type: 
  Country: None (occurrence: None)
  Receive Date: 20110412
  Receipt Date: 20110331
  Transmission Date: 20111010
  Serious: Yes (Hospitalization, Other)
  Sender: FDA-Public Use
  Company Number: PHHY2011FR28081

PATIENT
  Age: 85 Year
  Sex: Male

DRUGS (2)
  1. EXELON [Suspect]
     Indication: DEMENTIA ALZHEIMER'S TYPE
     Dosage: 4.6 MG, DAILY
     Route: 062
  2. EXELON [Suspect]
     Dosage: 9.5 MG, DAILY
     Route: 062
     Dates: end: 20110301

REACTIONS (5)
  - POLYP [None]
  - PLEURAL FIBROSIS [None]
  - MINI MENTAL STATUS EXAMINATION ABNORMAL [None]
  - GASTROOESOPHAGEAL REFLUX DISEASE [None]
  - WEIGHT DECREASED [None]
